FAERS Safety Report 17404362 (Version 3)
Quarter: 2020Q1

REPORT INFORMATION
  Report Type: Report from Study
  Country: DE (occurrence: DE)
  Receive Date: 20200211
  Receipt Date: 20200305
  Transmission Date: 20200409
  Serious: Yes (Death, Hospitalization)
  Sender: FDA-Public Use
  Company Number: DE-INCYTE CORPORATION-2020IN001004

PATIENT

DRUGS (18)
  1. INCB018424 [Suspect]
     Active Substance: RUXOLITINIB
     Dosage: 10 MG PER DAY
     Route: 048
     Dates: start: 20160223
  2. INCB018424 [Suspect]
     Active Substance: RUXOLITINIB
     Dosage: 20 MG PER DAY
     Route: 048
     Dates: start: 20160922, end: 20170111
  3. INCB018424 [Suspect]
     Active Substance: RUXOLITINIB
     Dosage: 15 MG PER DAY
     Route: 048
     Dates: start: 20170622, end: 20170913
  4. OMEPRAZOLE. [Concomitant]
     Active Substance: OMEPRAZOLE
     Indication: OESOPHAGITIS
  5. ALLOPURINOL. [Concomitant]
     Active Substance: ALLOPURINOL
     Indication: PROPHYLAXIS
     Dosage: 300 MG, QD
     Route: 065
     Dates: start: 1995
  6. PANTOZOL [Concomitant]
     Active Substance: PANTOPRAZOLE SODIUM
     Indication: GASTRITIS
  7. OMEPRAZOLE. [Concomitant]
     Active Substance: OMEPRAZOLE
     Indication: GASTRITIS
  8. INCB018424 [Suspect]
     Active Substance: RUXOLITINIB
     Indication: MYELOFIBROSIS
     Dosage: 12.5 MG PER DAY
     Route: 048
     Dates: start: 20151116
  9. DULOXETINE. [Concomitant]
     Active Substance: DULOXETINE
     Indication: POLYNEUROPATHY
     Dosage: 20 MG, QD
     Route: 065
     Dates: start: 20151005, end: 20160115
  10. INCB018424 [Suspect]
     Active Substance: RUXOLITINIB
     Dosage: 20 MG PER DAY
     Route: 048
     Dates: start: 20160412, end: 20160615
  11. INCB018424 [Suspect]
     Active Substance: RUXOLITINIB
     Dosage: 15 MG PER DAY
     Route: 048
     Dates: start: 20170112, end: 20170602
  12. INCB018424 [Suspect]
     Active Substance: RUXOLITINIB
     Dosage: 20 MG PER DAY
     Route: 048
     Dates: start: 20170603, end: 20170621
  13. INCB018424 [Suspect]
     Active Substance: RUXOLITINIB
     Dosage: 15 MG PER DAY
     Route: 048
     Dates: start: 20160616
  14. INCB018424 [Suspect]
     Active Substance: RUXOLITINIB
     Dosage: 10 MG PER DAY
     Route: 048
     Dates: start: 20170914
  15. INCB018424 [Suspect]
     Active Substance: RUXOLITINIB
     Dosage: 30 MG PER DAY
     Route: 048
     Dates: start: 20171123
  16. OMEPRAZOLE. [Concomitant]
     Active Substance: OMEPRAZOLE
     Indication: GASTROOESOPHAGEAL REFLUX DISEASE
     Dosage: 20 MG, QD
     Route: 065
     Dates: start: 20080423, end: 20160417
  17. ACC [ACETYLCYSTEINE] [Concomitant]
     Active Substance: ACETYLCYSTEINE
     Indication: PRODUCT USED FOR UNKNOWN INDICATION
     Dosage: 600 MG, QD
     Route: 065
     Dates: start: 20170616, end: 20170621
  18. PANTOZOL [Concomitant]
     Active Substance: PANTOPRAZOLE SODIUM
     Indication: OESOPHAGITIS
     Dosage: 80 MG, QD
     Route: 065
     Dates: start: 20180624

REACTIONS (1)
  - Death [Fatal]

NARRATIVE: CASE EVENT DATE: 20181227
